FAERS Safety Report 17307949 (Version 2)
Quarter: 2022Q2

REPORT INFORMATION
  Report Type: Spontaneous
  Country: US (occurrence: US)
  Receive Date: 20200123
  Receipt Date: 20220414
  Transmission Date: 20220721
  Serious: Yes (Hospitalization, Other)
  Sender: FDA-Public Use
  Company Number: US-SUN PHARMACEUTICAL INDUSTRIES LTD-2020R1-233201

PATIENT
  Age: 73 Year
  Sex: Female

DRUGS (1)
  1. DEXAMETHASONE [Suspect]
     Active Substance: DEXAMETHASONE
     Indication: Metastases to central nervous system
     Dosage: UNK
     Route: 065

REACTIONS (8)
  - Infectious pleural effusion [Unknown]
  - Leukocytosis [Unknown]
  - Lactic acidosis [Unknown]
  - Respiratory acidosis [Unknown]
  - Listeriosis [Unknown]
  - Pain [Recovering/Resolving]
  - Respiratory distress [Recovering/Resolving]
  - Pneumothorax [Unknown]
